FAERS Safety Report 7639270-5 (Version None)
Quarter: 2011Q3

REPORT INFORMATION
  Report Type: 
  Country: None (occurrence: None)
  Receive Date: 20110727
  Receipt Date: 20110718
  Transmission Date: 20111222
  Serious: Yes (Other)
  Sender: FDA-Public Use
  Company Number: PHHY2011CA32497

PATIENT
  Sex: Female

DRUGS (3)
  1. SANDOSTATIN LAR [Suspect]
     Indication: ACROMEGALY
     Dosage: 40 MG, EVERY 04 WEEKS
     Route: 030
     Dates: start: 20101125
  2. SANDOSTATIN LAR [Suspect]
     Dosage: 40 MG, QMO
     Route: 030
  3. SANDOSTATIN LAR [Suspect]
     Dosage: 40 MG, QMO
     Route: 030
     Dates: start: 20110615

REACTIONS (4)
  - ALOPECIA [None]
  - ABORTION SPONTANEOUS [None]
  - MATERNAL EXPOSURE DURING PREGNANCY [None]
  - BLOOD PRESSURE SYSTOLIC DECREASED [None]
